FAERS Safety Report 5915069-2 (Version None)
Quarter: 2008Q4

REPORT INFORMATION
  Report Type: 
  Country: None (occurrence: None)
  Receive Date: 20081010
  Receipt Date: 20080930
  Transmission Date: 20090506
  Serious: Yes (Congenital Anomaly)
  Sender: FDA-Public Use
  Company Number: A0750853A

PATIENT
  Age: 0 Year
  Sex: Female
  Weight: 3.1 kg

DRUGS (2)
  1. LAMICTAL [Suspect]
     Indication: EPILEPSY
     Dosage: 150MG PER DAY
     Dates: start: 20021202, end: 20030722
  2. DEPAKOTE [Concomitant]
     Indication: EPILEPSY
     Dosage: 1000MG PER DAY
     Dates: start: 20020212, end: 20080722

REACTIONS (6)
  - BONE DISORDER [None]
  - CONGENITAL HAND MALFORMATION [None]
  - DRUG EXPOSURE DURING PREGNANCY [None]
  - KIDNEY ENLARGEMENT [None]
  - KIDNEY MALFORMATION [None]
  - LIMB MALFORMATION [None]
